FAERS Safety Report 18448747 (Version 1)
Quarter: 2020Q4

REPORT INFORMATION
  Report Type: Spontaneous
  Country: CN (occurrence: CN)
  Receive Date: 20201030
  Receipt Date: 20201030
  Transmission Date: 20210114
  Serious: Yes (Other)
  Sender: FDA-Public Use
  Company Number: CN-BAXTER-2020BAX021955

PATIENT
  Age: 48 Year
  Sex: Male
  Weight: 51 kg

DRUGS (3)
  1. 20% MANNITOL INJECTION [Suspect]
     Active Substance: MANNITOL
     Indication: OEDEMA
     Route: 041
     Dates: start: 20201008, end: 20201008
  2. LORNOXICAM [Suspect]
     Active Substance: LORNOXICAM
     Indication: ANALGESIC THERAPY
     Dosage: WITH 0.9% NACL 250 MILLILITER (ML).
     Route: 041
     Dates: start: 20201008, end: 20201008
  3. SODIUM CHLORIDE. [Suspect]
     Active Substance: SODIUM CHLORIDE
     Indication: MEDICATION DILUTION
     Dosage: WITH LORNOXICAM.
     Route: 041
     Dates: start: 20201008, end: 20201008

REACTIONS (2)
  - Papule [Recovering/Resolving]
  - Pruritus [Recovering/Resolving]

NARRATIVE: CASE EVENT DATE: 20201009
